FAERS Safety Report 8758001 (Version 2)
Quarter: 2012Q4

REPORT INFORMATION
  Report Type: 
  Country: TW (occurrence: TW)
  Receive Date: 20120828
  Receipt Date: 20120911
  Transmission Date: 20130627
  Serious: Yes (Hospitalization)
  Sender: FDA-Public Use
  Company Number: TW-AMGEN-TWNSP2012053529

PATIENT
  Age: 69 Year
  Sex: Female
  Weight: 57 kg

DRUGS (9)
  1. ENBREL [Suspect]
     Dosage: 25 mg, 2x/week
     Route: 058
     Dates: start: 20120220, end: 20120718
  2. PREDNISOLONE [Concomitant]
     Indication: RHEUMATOID ARTHRITIS
     Dosage: 7.5 mg, QD
     Route: 048
  3. ULTRACET [Concomitant]
     Indication: RHEUMATOID ARTHRITIS
     Dosage: 0.5 DF, BID
     Route: 048
  4. HYDROXYCHLOROQUINE [Concomitant]
     Indication: RHEUMATOID ARTHRITIS
     Dosage: 200 mg, QD
     Route: 048
  5. METHOTREXATE [Concomitant]
     Indication: RHEUMATOID ARTHRITIS
     Dosage: 15 mg, QW
     Route: 048
  6. FOLIC ACID [Concomitant]
     Indication: RHEUMATOID ARTHRITIS
     Dosage: 5 mg, UNK
     Route: 048
  7. CALCIUM ACETATE [Concomitant]
     Dosage: 667 mg, QD
     Route: 048
  8. CELECOXIB [Concomitant]
     Indication: RHEUMATOID ARTHRITIS
     Dosage: 1 DF, BID
     Route: 048
  9. GENIQUIN [Concomitant]
     Indication: RHEUMATOID ARTHRITIS
     Dosage: 200 mg, QD
     Route: 048

REACTIONS (11)
  - Nephrolithiasis [Recovered/Resolved]
  - Pulmonary oedema [Recovered/Resolved]
  - Hydronephrosis [Recovered/Resolved]
  - Urine osmolarity decreased [Recovered/Resolved]
  - Blood pressure increased [Recovered/Resolved]
  - Diarrhoea [Recovered/Resolved]
  - Septic shock [Recovered/Resolved]
  - Sepsis [Recovered/Resolved]
  - Thrombocytopenia [Recovered/Resolved]
  - Pyelonephritis acute [Recovered/Resolved]
  - Escherichia infection [Recovered/Resolved]
